FAERS Safety Report 8954621 (Version 1)
Quarter: 2012Q4

REPORT INFORMATION
  Report Type: 
  Country: IT (occurrence: IT)
  Receive Date: 20121207
  Receipt Date: 20121207
  Transmission Date: 20130627
  Serious: Yes (Hospitalization)
  Sender: FDA-Public Use
  Company Number: IT-PFIZER INC-2012301273

PATIENT
  Age: 39 Year
  Sex: Female

DRUGS (5)
  1. PANTOPRAZOLE [Suspect]
     Dosage: 14 DF, single
     Route: 048
     Dates: start: 20121011, end: 20121011
  2. METFORMIN HCL [Suspect]
     Dosage: 20 DF, single
     Route: 048
     Dates: start: 20121011, end: 20121011
  3. SERTRALINE HCL [Suspect]
     Indication: SUICIDE ATTEMPT
     Dosage: 9 DF, single
     Route: 048
     Dates: start: 20121011, end: 20121011
  4. LORAZEPAM [Suspect]
     Indication: SUICIDE ATTEMPT
     Dosage: 20 DF, single
     Route: 048
     Dates: start: 20121011, end: 20121011
  5. DICLOFENAC [Suspect]
     Indication: SUICIDE ATTEMPT
     Dosage: 2 DF, single
     Route: 030
     Dates: start: 20121011, end: 20121011

REACTIONS (4)
  - Intentional overdose [Unknown]
  - Drug abuse [Unknown]
  - Suicide attempt [Unknown]
  - Toxicity to various agents [Unknown]
